FAERS Safety Report 20807494 (Version 1)
Quarter: 2022Q2

REPORT INFORMATION
  Report Type: Spontaneous
  Country: RO (occurrence: RO)
  Receive Date: 20220510
  Receipt Date: 20220510
  Transmission Date: 20220721
  Serious: Yes (Other)
  Sender: FDA-Public Use
  Company Number: RO-AMGEN-ROUSP2022074155

PATIENT
  Age: 63 Year
  Sex: Male

DRUGS (3)
  1. VECTIBIX [Suspect]
     Active Substance: PANITUMUMAB
     Indication: Colorectal cancer metastatic
     Dosage: 6 MILLIGRAM/KILOGRAM
     Route: 042
     Dates: start: 202103
  2. VECTIBIX [Suspect]
     Active Substance: PANITUMUMAB
     Dosage: UNK,  REDUCED DOSE OF 25%
     Route: 042
     Dates: start: 202104
  3. CAPECITABINE\OXALIPLATIN [Suspect]
     Active Substance: CAPECITABINE\OXALIPLATIN
     Indication: Colorectal cancer metastatic
     Dosage: UNK
     Route: 042
     Dates: start: 202103

REACTIONS (13)
  - Neuropathy peripheral [Unknown]
  - Rash pustular [Unknown]
  - Skin toxicity [Unknown]
  - Dermatitis acneiform [Unknown]
  - Rash erythematous [Unknown]
  - Papule [Unknown]
  - Pustule [Unknown]
  - Pruritus [Unknown]
  - Tenderness [Unknown]
  - Psychological factor affecting medical condition [Unknown]
  - Loss of personal independence in daily activities [Unknown]
  - Discomfort [Unknown]
  - Sensitive skin [Unknown]

NARRATIVE: CASE EVENT DATE: 20210401
